FAERS Safety Report 16059776 (Version 1)
Quarter: 2019Q1

REPORT INFORMATION
  Report Type: Report from Study
  Country: None (occurrence: US)
  Receive Date: 20190311
  Receipt Date: 20190311
  Transmission Date: 20190418
  Serious: Yes (Other)
  Sender: FDA-Public Use
  Company Number: US-ABBVIE-18K-163-2553239-00

PATIENT
  Age: 72 Year
  Sex: Female

DRUGS (2)
  1. HUMIRA [Suspect]
     Active Substance: ADALIMUMAB
     Route: 058
  2. HUMIRA [Suspect]
     Active Substance: ADALIMUMAB
     Indication: PSORIASIS
     Route: 058

REACTIONS (16)
  - Migraine [Not Recovered/Not Resolved]
  - Bronchitis [Unknown]
  - Impaired healing [Not Recovered/Not Resolved]
  - Nerve compression [Unknown]
  - Back pain [Unknown]
  - Wound complication [Not Recovered/Not Resolved]
  - Erythema [Unknown]
  - Pain in extremity [Recovering/Resolving]
  - Therapeutic response unexpected [Unknown]
  - Pre-existing condition improved [Unknown]
  - Dry skin [Unknown]
  - Renal impairment [Unknown]
  - Fall [Recovering/Resolving]
  - Photosensitivity reaction [Unknown]
  - Eye disorder [Recovering/Resolving]
  - Injury [Unknown]
